FAERS Safety Report 11073791 (Version 4)
Quarter: 2015Q3

REPORT INFORMATION
  Report Type: Report from Study
  Country: US (occurrence: US)
  Receive Date: 20150428
  Receipt Date: 20150825
  Transmission Date: 20151125
  Serious: Yes (Death, Hospitalization)
  Sender: FDA-Public Use
  Company Number: US-ACTELION-A-US2015-111712

PATIENT
  Age: 83 Year
  Sex: Male

DRUGS (1)
  1. MACITENTAN [Suspect]
     Active Substance: MACITENTAN
     Indication: PULMONARY ARTERIAL HYPERTENSION
     Dosage: 10 MG, QD
     Route: 048
     Dates: end: 20150624

REACTIONS (8)
  - Pulmonary arterial hypertension [Unknown]
  - No therapeutic response [Unknown]
  - Oxygen saturation abnormal [Unknown]
  - Feeding tube complication [Unknown]
  - Death [Fatal]
  - Hypoxia [Unknown]
  - Disease complication [Unknown]
  - Cardiac failure congestive [Unknown]

NARRATIVE: CASE EVENT DATE: 20150116
